FAERS Safety Report 4286436-0 (Version None)
Quarter: 2004Q1

REPORT INFORMATION
  Report Type: 
  Country: None (occurrence: None)
  Receive Date: 20040204
  Receipt Date: 20040126
  Transmission Date: 20041129
  Serious: No
  Sender: FDA-Public Use
  Company Number: 2004UW01309

PATIENT
  Age: 65 Year
  Sex: Female

DRUGS (3)
  1. PULMICORT RESPULES [Suspect]
     Dosage: 0.5 MG/2 ML
     Dates: start: 20040113
  2. ALBUTEROL [Concomitant]
  3. IPRATROPIUM BROMIDE [Concomitant]

REACTIONS (1)
  - DYSPNOEA [None]
